FAERS Safety Report 6682995-9 (Version None)
Quarter: 2010Q2

REPORT INFORMATION
  Report Type: 
  Country: None (occurrence: None)
  Receive Date: 20100415
  Receipt Date: 20100409
  Transmission Date: 20101027
  Serious: Yes (Other)
  Sender: FDA-Public Use
  Company Number: US-ASTRAZENECA-2010SE15644

PATIENT
  Age: 67 Year
  Sex: Male

DRUGS (3)
  1. CRESTOR [Suspect]
     Route: 048
     Dates: end: 20100301
  2. SIMVASTATIN [Suspect]
     Indication: BLOOD CHOLESTEROL INCREASED
     Dates: start: 20100301
  3. FLOMAX [Concomitant]

REACTIONS (8)
  - DYSPHONIA [None]
  - FATIGUE [None]
  - HYPOTENSION [None]
  - LIVER FUNCTION TEST ABNORMAL [None]
  - MYALGIA [None]
  - THYROID FUNCTION TEST ABNORMAL [None]
  - VERTIGO [None]
  - WEIGHT DECREASED [None]
